FAERS Safety Report 24190513 (Version 1)
Quarter: 2024Q3

REPORT INFORMATION
  Report Type: Report from Study
  Country: GB (occurrence: GB)
  Receive Date: 20240808
  Receipt Date: 20240808
  Transmission Date: 20241016
  Serious: Yes (Hospitalization)
  Sender: ABBVIE
  Company Number: GB-ABBVIE-5837175

PATIENT
  Sex: Female

DRUGS (1)
  1. SKYRIZI [Suspect]
     Active Substance: RISANKIZUMAB-RZAA
     Indication: Psoriasis
     Dosage: LAST ADMIN DATE: 2024?FORM STRENGTH: 150 MILLIGRAM
     Route: 058
     Dates: end: 2024

REACTIONS (4)
  - Renal impairment [Unknown]
  - Lower respiratory tract infection [Recovered/Resolved]
  - Herpes zoster [Recovered/Resolved]
  - Eyelid ptosis [Not Recovered/Not Resolved]
